FAERS Safety Report 7329037-X (Version None)
Quarter: 2011Q1

REPORT INFORMATION
  Report Type: 
  Country: None (occurrence: None)
  Receive Date: 20110303
  Receipt Date: 20110222
  Transmission Date: 20110831
  Serious: Yes (Other)
  Sender: FDA-Public Use
  Company Number: JP-ASTRAZENECA-2011SE11131

PATIENT
  Age: 94 Year
  Sex: Male

DRUGS (4)
  1. CEREB [Concomitant]
     Route: 048
     Dates: start: 20110126
  2. SEROQUEL [Suspect]
     Route: 048
     Dates: start: 20110112, end: 20110123
  3. SEROQUEL [Suspect]
     Route: 048
     Dates: start: 20110124
  4. MEROPEN [Concomitant]
     Dates: start: 20110119, end: 20110222

REACTIONS (1)
  - BLOOD POTASSIUM INCREASED [None]
